FAERS Safety Report 16559685 (Version 1)
Quarter: 2019Q3

REPORT INFORMATION
  Report Type: Spontaneous
  Country: US (occurrence: US)
  Receive Date: 20190530
  Receipt Date: 20190530
  Transmission Date: 20191004
  Serious: No
  Sender: FDA-Public Use
  Company Number: None

PATIENT
  Age: 53 Year
  Sex: Female

DRUGS (1)
  1. STELARA [Suspect]
     Active Substance: USTEKINUMAB
     Dosage: ?          OTHER DOSE:90MG EVERY 8 WEEKS;OTHER FREQUENCY:UNKNOWN;?
     Route: 058
     Dates: start: 201811

REACTIONS (3)
  - Hypoaesthesia [None]
  - Joint swelling [None]
  - Paraesthesia [None]

NARRATIVE: CASE EVENT DATE: 20190530
